FAERS Safety Report 15523782 (Version 2)
Quarter: 2018Q4

REPORT INFORMATION
  Report Type: Report from Study
  Country: CN (occurrence: CN)
  Receive Date: 20181019
  Receipt Date: 20181127
  Transmission Date: 20190205
  Serious: Yes (Hospitalization)
  Sender: FDA-Public Use
  Company Number: CN-ASTRAZENECA-2018SF36884

PATIENT
  Age: 22881 Day
  Sex: Male
  Weight: 70 kg

DRUGS (20)
  1. BLINDED PLACEBO [Suspect]
     Active Substance: INVESTIGATIONAL PRODUCT
     Indication: PERCUTANEOUS CORONARY INTERVENTION
     Route: 048
     Dates: start: 20171011, end: 20180403
  2. BLINDED PLACEBO [Suspect]
     Active Substance: INVESTIGATIONAL PRODUCT
     Indication: CARDIOVASCULAR DISORDER
     Route: 048
     Dates: start: 20180404, end: 20181011
  3. LEVAMLODIPINE BESYLATE [Concomitant]
     Active Substance: LEVAMLODIPINE BESYLATE
     Indication: HYPERTENSION
     Route: 048
     Dates: start: 20170707
  4. ASPIRIN. [Suspect]
     Active Substance: ASPIRIN
     Indication: CARDIOVASCULAR DISORDER
     Route: 048
     Dates: start: 20170707, end: 20171010
  5. BLINDED PLACEBO [Suspect]
     Active Substance: INVESTIGATIONAL PRODUCT
     Indication: PERCUTANEOUS CORONARY INTERVENTION
     Route: 048
     Dates: start: 20180404, end: 20181011
  6. TICAGRELOR. [Suspect]
     Active Substance: TICAGRELOR
     Indication: PERCUTANEOUS CORONARY INTERVENTION
     Route: 048
     Dates: start: 20170707, end: 20171010
  7. BLINDED ASPIRIN [Suspect]
     Active Substance: ASPIRIN
     Indication: CARDIOVASCULAR DISORDER
     Route: 048
     Dates: start: 20171011, end: 20180403
  8. ATORVASTATIN CALCIUM. [Concomitant]
     Active Substance: ATORVASTATIN CALCIUM
     Indication: HYPERCHOLESTEROLAEMIA
     Route: 048
  9. TICAGRELOR. [Suspect]
     Active Substance: TICAGRELOR
     Indication: CARDIOVASCULAR DISORDER
     Route: 048
     Dates: start: 20180403, end: 20181011
  10. TICAGRELOR. [Suspect]
     Active Substance: TICAGRELOR
     Indication: PERCUTANEOUS CORONARY INTERVENTION
     Route: 048
     Dates: start: 20180403, end: 20181011
  11. BLINDED ASPIRIN [Suspect]
     Active Substance: ASPIRIN
     Indication: CARDIOVASCULAR DISORDER
     Route: 048
     Dates: start: 20180404, end: 20181011
  12. BLINDED PLACEBO [Suspect]
     Active Substance: INVESTIGATIONAL PRODUCT
     Indication: CARDIOVASCULAR DISORDER
     Route: 048
     Dates: start: 20170707, end: 20171010
  13. TICAGRELOR. [Suspect]
     Active Substance: TICAGRELOR
     Indication: CARDIOVASCULAR DISORDER
     Route: 048
     Dates: start: 20171010, end: 20180403
  14. TICAGRELOR. [Suspect]
     Active Substance: TICAGRELOR
     Indication: PERCUTANEOUS CORONARY INTERVENTION
     Route: 048
     Dates: start: 20171010, end: 20180403
  15. BLINDED PLACEBO [Suspect]
     Active Substance: INVESTIGATIONAL PRODUCT
     Indication: CARDIOVASCULAR DISORDER
     Route: 048
     Dates: start: 20171011, end: 20180403
  16. TICAGRELOR. [Suspect]
     Active Substance: TICAGRELOR
     Indication: CARDIOVASCULAR DISORDER
     Route: 048
     Dates: start: 20170707, end: 20171010
  17. ASPIRIN. [Suspect]
     Active Substance: ASPIRIN
     Indication: PERCUTANEOUS CORONARY INTERVENTION
     Route: 048
     Dates: start: 20170707, end: 20171010
  18. BLINDED ASPIRIN [Suspect]
     Active Substance: ASPIRIN
     Indication: PERCUTANEOUS CORONARY INTERVENTION
     Route: 048
     Dates: start: 20171011, end: 20180403
  19. BLINDED ASPIRIN [Suspect]
     Active Substance: ASPIRIN
     Indication: PERCUTANEOUS CORONARY INTERVENTION
     Route: 048
     Dates: start: 20180404, end: 20181011
  20. BLINDED PLACEBO [Suspect]
     Active Substance: INVESTIGATIONAL PRODUCT
     Indication: PERCUTANEOUS CORONARY INTERVENTION
     Route: 048
     Dates: start: 20170707, end: 20171010

REACTIONS (1)
  - Vascular stent thrombosis [Recovered/Resolved]

NARRATIVE: CASE EVENT DATE: 20180713
